FAERS Safety Report 9393487 (Version 8)
Quarter: 2014Q3

REPORT INFORMATION
  Report Type: Report from Study
  Country: GB (occurrence: GB)
  Receive Date: 20130710
  Receipt Date: 20140807
  Transmission Date: 20150326
  Serious: Yes (Hospitalization)
  Sender: FDA-Public Use
  Company Number: PHHO2013GB008921

PATIENT

DRUGS (6)
  1. AEB071 [Suspect]
     Active Substance: SOTRASTAURIN
     Dosage: UNK
     Dates: start: 20131114
  2. CYCLIZINE [Concomitant]
     Active Substance: CYCLIZINE
     Indication: NAUSEA
     Dosage: 50 MG, TID
  3. AEB071 [Suspect]
     Active Substance: SOTRASTAURIN
     Indication: METASTATIC MALIGNANT MELANOMA
     Dosage: 800 MG, TID
     Dates: start: 20130702
  4. AEB071 [Suspect]
     Active Substance: SOTRASTAURIN
     Dosage: NO TREATMENT
     Dates: start: 20131104, end: 20131108
  5. ONDANSETRON [Suspect]
     Active Substance: ONDANSETRON
     Indication: NAUSEA
     Dosage: 8 MG, BID
     Route: 048
     Dates: start: 20130701
  6. DOMPERIDONE [Suspect]
     Active Substance: DOMPERIDONE
     Indication: NAUSEA
     Dosage: 10 MG, QD
     Route: 048
     Dates: start: 20130701

REACTIONS (2)
  - Syncope [Recovered/Resolved]
  - Haematemesis [Recovered/Resolved]

NARRATIVE: CASE EVENT DATE: 20130702
